FAERS Safety Report 8950314 (Version 1)
Quarter: 2012Q4

REPORT INFORMATION
  Report Type: Spontaneous
  Country: US (occurrence: None)
  Receive Date: 20121130
  Receipt Date: 20121130
  Transmission Date: 20130627
  Serious: No
  Sender: FDA-Public Use
  Company Number: None

PATIENT
  Sex: Female
  Weight: 38.6 kg

DRUGS (1)
  1. SINGULAIR [Suspect]
     Indication: ASTHMA
     Dosage: SINGULAIR (GENERIC) 5MGCHEW 1 DAILY ORAL
     Route: 048
     Dates: start: 20090917, end: 20121120

REACTIONS (1)
  - Drug effect decreased [None]
